FAERS Safety Report 18174106 (Version 1)
Quarter: 2020Q3

REPORT INFORMATION
  Report Type: Spontaneous
  Country: MP (occurrence: MP)
  Receive Date: 20200819
  Receipt Date: 20200819
  Transmission Date: 20201103
  Serious: Yes (Other)
  Sender: FDA-Public Use
  Company Number: None

PATIENT
  Age: 68 Year
  Sex: Female
  Weight: 64.8 kg

DRUGS (3)
  1. HERCEPTIN [Suspect]
     Active Substance: TRASTUZUMAB
     Indication: INVASIVE DUCTAL BREAST CARCINOMA
     Dosage: ?          OTHER FREQUENCY:EVERY 21 DAYS;?
     Route: 040
  2. PERJETA [Concomitant]
     Active Substance: PERTUZUMAB
     Dates: start: 20200814, end: 20200814
  3. HERCEPTIN [Suspect]
     Active Substance: TRASTUZUMAB
     Indication: INVASIVE DUCTAL BREAST CARCINOMA
     Dosage: ?          OTHER FREQUENCY:EVERY 21 DAYS;?
     Route: 040

REACTIONS (7)
  - Diarrhoea [None]
  - Blood urea increased [None]
  - Blood creatinine increased [None]
  - Vomiting [None]
  - Liver function test increased [None]
  - Chills [None]
  - Pyrexia [None]

NARRATIVE: CASE EVENT DATE: 20200814
